FAERS Safety Report 5919338-1 (Version None)
Quarter: 2008Q4

REPORT INFORMATION
  Report Type: 
  Country: None (occurrence: None)
  Receive Date: 20081015
  Receipt Date: 20081006
  Transmission Date: 20090506
  Serious: Yes (Life-Threatening, Hospitalization)
  Sender: FDA-Public Use
  Company Number: A0745400A

PATIENT
  Age: 77 Year
  Sex: Male
  Weight: 115.9 kg

DRUGS (2)
  1. ARIXTRA [Suspect]
     Route: 058
     Dates: start: 20080825, end: 20080101
  2. NERVE BLOCK [Concomitant]

REACTIONS (5)
  - CARDIAC ARREST [None]
  - DEEP VEIN THROMBOSIS [None]
  - DRUG INEFFECTIVE [None]
  - DYSPNOEA [None]
  - PULMONARY EMBOLISM [None]
